FAERS Safety Report 9836726 (Version 3)
Quarter: 2014Q3

REPORT INFORMATION
  Report Type: Spontaneous
  Country: CN (occurrence: CN)
  Receive Date: 20140123
  Receipt Date: 20140720
  Transmission Date: 20150326
  Serious: Yes (Hospitalization)
  Sender: FDA-Public Use
  Company Number: PHHY2014CN006025

PATIENT
  Age: 76 Year
  Sex: Female
  Weight: 58 kg

DRUGS (11)
  1. ALFACALCIDOL [Concomitant]
     Active Substance: ALFACALCIDOL
     Indication: MINERAL SUPPLEMENTATION
     Dosage: 0.5 UG, QD
     Route: 048
     Dates: start: 20130201, end: 20140128
  2. HYDROXYCHLOROQUINE [Concomitant]
     Active Substance: HYDROXYCHLOROQUINE
     Dosage: 100 MG, BID
     Route: 048
     Dates: start: 20130201, end: 20140128
  3. ADALAT [Concomitant]
     Active Substance: NIFEDIPINE
     Indication: HYPERTENSION
     Dosage: 30 MG, QD
     Route: 048
     Dates: start: 20130201, end: 20140128
  4. XIE DA LI [Concomitant]
     Dosage: 200 MG, BID
     Route: 048
     Dates: start: 20130201, end: 20140128
  5. ACLASTA [Suspect]
     Active Substance: ZOLEDRONIC ACID
     Dosage: 1 AMPOULE, UNK
     Route: 042
     Dates: start: 20140212
  6. YUNKER 1.6.12 [Concomitant]
     Indication: ANALGESIC THERAPY
  7. LEFLUNOMIDE. [Concomitant]
     Active Substance: LEFLUNOMIDE
     Dosage: 10 MG, QD
     Route: 048
     Dates: start: 20130201, end: 20140128
  8. BAYASPIRIN [Concomitant]
     Active Substance: ASPIRIN
     Indication: CORONARY ARTERY DISEASE
     Dosage: 100 MG, QD
     Route: 048
     Dates: start: 20130201, end: 20140128
  9. NOVOLIN [Concomitant]
     Active Substance: INSULIN HUMAN
     Indication: BLOOD GLUCOSE ABNORMAL
     Dosage: 30 R 12U/10U BEFORE BRAKFAST/SUPPER
     Dates: start: 20130201, end: 20140128
  10. ACLASTA [Suspect]
     Active Substance: ZOLEDRONIC ACID
     Indication: OSTEOPOROSIS
     Dosage: 1 AMPOULE, UNK
     Route: 042
     Dates: start: 20130201
  11. YUNKER 1.6.12 [Concomitant]
     Indication: ANTIINFLAMMATORY THERAPY
     Dosage: 22 MG, QD
     Route: 048
     Dates: start: 20130201, end: 20140128

REACTIONS (4)
  - Blood pressure increased [Recovered/Resolved]
  - Chest pain [Recovered/Resolved]
  - Abdominal distension [Recovered/Resolved]
  - Intestinal obstruction [Recovered/Resolved]

NARRATIVE: CASE EVENT DATE: 20140128
